FAERS Safety Report 6753195-9 (Version None)
Quarter: 2010Q2

REPORT INFORMATION
  Report Type: 
  Country: None (occurrence: None)
  Receive Date: 20100603
  Receipt Date: 20100524
  Transmission Date: 20101027
  Serious: Yes (Hospitalization, Other)
  Sender: FDA-Public Use
  Company Number: US-PFIZER INC-2005001870

PATIENT
  Age: 60 Year
  Sex: Female
  Weight: 99.79 kg

DRUGS (5)
  1. NICOTROL [Suspect]
     Indication: SMOKING CESSATION THERAPY
     Dosage: 1-2 CARTRIDGE QD
     Route: 055
     Dates: start: 20040901
  2. ATORVASTATIN CALCIUM [Concomitant]
     Indication: HYPERCHOLESTEROLAEMIA
     Dosage: 20MG QD
     Dates: start: 20040701
  3. AZITHROMYCIN [Concomitant]
     Dosage: 2PILL ON 30DEC2004
     Route: 048
  4. RANITIDINE [Concomitant]
     Indication: GASTROOESOPHAGEAL REFLUX DISEASE
     Dosage: 150 MG, 2X/DAY
  5. COMBIVENT [Concomitant]
     Indication: BRONCHITIS
     Dosage: ONE PUFF
     Route: 055
     Dates: start: 20041230, end: 20041230

REACTIONS (6)
  - DRUG INEFFECTIVE [None]
  - DYSPNOEA [None]
  - HYPERSENSITIVITY [None]
  - INCORRECT DRUG ADMINISTRATION DURATION [None]
  - NICOTINE DEPENDENCE [None]
  - PANIC ATTACK [None]
